FAERS Safety Report 8945390 (Version 1)
Quarter: 2012Q4

REPORT INFORMATION
  Report Type: 
  Country: FR (occurrence: FR)
  Receive Date: 20121205
  Receipt Date: 20121205
  Transmission Date: 20130627
  Serious: Yes (Hospitalization, Other)
  Sender: FDA-Public Use
  Company Number: PHHY2012FR110099

PATIENT
  Age: 78 Year
  Sex: Male

DRUGS (5)
  1. VOLTARENE [Suspect]
     Indication: MUSCULOSKELETAL STIFFNESS
     Dosage: UNK UKN, UNK
     Dates: start: 20120607, end: 20120619
  2. DAFALGAN [Suspect]
     Indication: MUSCULOSKELETAL STIFFNESS
     Dosage: UNK UKN, UNK
     Dates: start: 20120607, end: 20120619
  3. COLLYRIUM [Concomitant]
  4. TRANSIPEG [Concomitant]
  5. TADENAN [Concomitant]

REACTIONS (13)
  - Pancreatitis acute [Recovered/Resolved]
  - Abdominal pain upper [Unknown]
  - Vomiting [Unknown]
  - Peripancreatic fluid collection [Unknown]
  - Atelectasis [Unknown]
  - Pleural effusion [Unknown]
  - Effusion [Unknown]
  - Cholelithiasis [Unknown]
  - Helicobacter infection [Unknown]
  - Peptic ulcer perforation [Unknown]
  - Abdominal tenderness [Unknown]
  - Dyspepsia [Unknown]
  - Body temperature increased [Unknown]
